FAERS Safety Report 5179102-0 (Version None)
Quarter: 2006Q4

REPORT INFORMATION
  Report Type: 
  Country: None (occurrence: None)
  Receive Date: 20061211
  Receipt Date: 20061207
  Transmission Date: 20070319
  Serious: Yes (Life-Threatening)
  Sender: FDA-Public Use
  Company Number: FRWYE687029MNOV06

PATIENT
  Sex: Female

DRUGS (4)
  1. MICROVAL (LEVONORGESTREL, TABLET, 0) [Suspect]
     Indication: CONTRACEPTION
     Route: 064
     Dates: end: 20060613
  2. ASPEGIC BABY (ACETYLSALICYLATE LYSINE/AMINOACETIC ACID,,0) [Suspect]
     Dosage: 100 MG 1X PER 1 DAY
     Route: 064
     Dates: start: 20060613, end: 20061015
  3. OMEPRAZOLE [Suspect]
     Dosage: 20 MG 1XPER 1 DAY
     Dates: start: 20060613, end: 20061015
  4. TRACLEER [Suspect]
     Indication: SCLERODERMA
     Dosage: 125 MG 2X PER 1 DAY
     Route: 064
     Dates: start: 20060301, end: 20060301

REACTIONS (6)
  - CAESAREAN SECTION [None]
  - DRUG EXPOSURE DURING PREGNANCY [None]
  - FOETAL GROWTH RETARDATION [None]
  - FOETAL MOVEMENTS DECREASED [None]
  - NEONATAL RESPIRATORY DISTRESS SYNDROME [None]
  - PREMATURE BABY [None]
